FAERS Safety Report 4787677-6 (Version None)
Quarter: 2005Q3

REPORT INFORMATION
  Report Type: 
  Country: None (occurrence: None)
  Receive Date: 20050926
  Receipt Date: 20050818
  Transmission Date: 20060218
  Serious: Yes (Hospitalization)
  Sender: FDA-Public Use
  Company Number: 217034

PATIENT
  Age: 52 Year
  Sex: Female

DRUGS (6)
  1. AVASTIN [Suspect]
     Indication: COLON CANCER METASTATIC
     Dosage: 5 MG/KG,Q2W
     Dates: start: 20050621
  2. FLUOROURACIL [Concomitant]
  3. OXALIPLATIN(OXALIPLATIN) [Concomitant]
  4. LEUCOVORIN CALCIUM [Concomitant]
  5. MORPHINE [Concomitant]
  6. INSULIN PUMP (INSULIN) [Concomitant]

REACTIONS (1)
  - ABDOMINAL PAIN [None]
